FAERS Safety Report 11444676 (Version 1)
Quarter: 2015Q3

REPORT INFORMATION
  Report Type: Spontaneous
  Country: US (occurrence: None)
  Receive Date: 20150831
  Receipt Date: 20150831
  Transmission Date: 20151125
  Serious: Yes (Other)
  Sender: FDA-Public Use
  Company Number: US-2015ARB000011

PATIENT
  Age: 17 Year
  Sex: Male

DRUGS (4)
  1. FISH OIL (FISH OIL) [Concomitant]
     Active Substance: FISH OIL
  2. XYREM (OXYBATE SODIUM) [Concomitant]
  3. EVEKEO [Suspect]
     Active Substance: AMPHETAMINE SULFATE
     Indication: NARCOLEPSY
     Route: 048
     Dates: start: 20150810
  4. MULTIVITAMINS (CALCIUM PANTOTHENATE, FOLIC ACID, VITAMINS NOS) [Concomitant]

REACTIONS (4)
  - Tremor [None]
  - Echolalia [None]
  - Diarrhoea [None]
  - Pollakiuria [None]

NARRATIVE: CASE EVENT DATE: 201508
